FAERS Safety Report 10950169 (Version 1)
Quarter: 2015Q1

REPORT INFORMATION
  Report Type: Spontaneous
  Country: TR (occurrence: TR)
  Receive Date: 20150324
  Receipt Date: 20150324
  Transmission Date: 20150721
  Serious: Yes (Death, Other)
  Sender: FDA-Public Use
  Company Number: TR-CUBIST PHARMACEUTICALS, INC.-2015CBST000367

PATIENT

DRUGS (1)
  1. CUBICIN [Suspect]
     Active Substance: DAPTOMYCIN
     Indication: CELLULITIS
     Dosage: 350 MG, QD
     Route: 042

REACTIONS (2)
  - Death [Fatal]
  - Subcutaneous abscess [Unknown]
